FAERS Safety Report 14999810 (Version 6)
Quarter: 2019Q1

REPORT INFORMATION
  Report Type: Report from Study
  Country: IT (occurrence: IT)
  Receive Date: 20180612
  Receipt Date: 20190131
  Transmission Date: 20190417
  Serious: Yes (Death, Life-Threatening, Other)
  Sender: FDA-Public Use
  Company Number: IT-ROCHE-2134830

PATIENT
  Age: 57 Year
  Sex: Male
  Weight: 81 kg

DRUGS (3)
  1. OCRELIZUMAB. [Suspect]
     Active Substance: OCRELIZUMAB
     Indication: PRIMARY PROGRESSIVE MULTIPLE SCLEROSIS
     Route: 042
     Dates: start: 20180412, end: 20180607
  2. OCRELIZUMAB. [Suspect]
     Active Substance: OCRELIZUMAB
     Route: 042
     Dates: start: 20180412
  3. ARIXTRA [Concomitant]
     Active Substance: FONDAPARINUX SODIUM
     Route: 065

REACTIONS (5)
  - Adenocarcinoma [Fatal]
  - Pyrexia [Unknown]
  - Cerebrovascular accident [Not Recovered/Not Resolved]
  - Pneumothorax [Recovering/Resolving]
  - Coma [Unknown]

NARRATIVE: CASE EVENT DATE: 20180603
